FAERS Safety Report 10703216 (Version 2)
Quarter: 2015Q1

REPORT INFORMATION
  Report Type: Report from Study
  Country: FR (occurrence: FR)
  Receive Date: 20150112
  Receipt Date: 20150112
  Transmission Date: 20150721
  Serious: Yes (Hospitalization, Other)
  Sender: FDA-Public Use
  Company Number: FR-ROCHE-1164761

PATIENT
  Age: 43 Year
  Sex: Female

DRUGS (20)
  1. METHOTREXATE [Concomitant]
     Active Substance: METHOTREXATE
     Indication: RHEUMATOID ARTHRITIS
     Route: 065
  2. RITUXIMAB [Suspect]
     Active Substance: RITUXIMAB
     Dosage: D15
     Route: 042
     Dates: start: 20101006
  3. METHOTREXATE [Concomitant]
     Active Substance: METHOTREXATE
     Route: 065
  4. RITUXIMAB [Suspect]
     Active Substance: RITUXIMAB
     Dosage: SINGLE INFUSION
     Route: 042
     Dates: start: 20121015
  5. RITUXIMAB [Suspect]
     Active Substance: RITUXIMAB
     Dosage: D1
     Route: 042
     Dates: start: 20100921
  6. RITUXIMAB [Suspect]
     Active Substance: RITUXIMAB
     Dosage: SINGLE INFUSION
     Route: 042
     Dates: start: 20120416
  7. RITUXIMAB [Suspect]
     Active Substance: RITUXIMAB
     Dosage: SINGLE INFUSION
     Route: 042
     Dates: start: 20131017
  8. METHOTREXATE [Concomitant]
     Active Substance: METHOTREXATE
     Dosage: 6 TABLET WEEKLY
     Route: 065
  9. CORTANCYL [Concomitant]
     Active Substance: PREDNISONE
     Dosage: DAILY
     Route: 065
  10. RITUXIMAB [Suspect]
     Active Substance: RITUXIMAB
     Dosage: D1
     Route: 042
     Dates: start: 20100205
  11. RITUXIMAB [Suspect]
     Active Substance: RITUXIMAB
     Dosage: SINGLE INFUSION
     Route: 042
     Dates: start: 20111005
  12. CORTANCYL [Concomitant]
     Active Substance: PREDNISONE
     Dosage: DAILY
     Route: 065
  13. RITUXIMAB [Suspect]
     Active Substance: RITUXIMAB
     Dosage: D15
     Route: 042
     Dates: start: 20100219
  14. RITUXIMAB [Suspect]
     Active Substance: RITUXIMAB
     Dosage: SINGLE INFUSION
     Route: 042
     Dates: start: 20130415
  15. RITUXIMAB [Suspect]
     Active Substance: RITUXIMAB
     Dosage: SINGLE INFUSION
     Route: 042
     Dates: start: 20140505
  16. CORTANCYL [Concomitant]
     Active Substance: PREDNISONE
     Dosage: DAILY
     Route: 065
  17. RITUXIMAB [Suspect]
     Active Substance: RITUXIMAB
     Indication: RHEUMATOID ARTHRITIS
     Dosage: D1
     Route: 042
     Dates: start: 20090323
  18. CORTANCYL [Concomitant]
     Active Substance: PREDNISONE
     Dosage: DAILY
     Route: 065
  19. RITUXIMAB [Suspect]
     Active Substance: RITUXIMAB
     Dosage: D15
     Route: 042
     Dates: start: 20090406
  20. RITUXIMAB [Suspect]
     Active Substance: RITUXIMAB
     Dosage: SINGLE INFUSION
     Route: 042
     Dates: start: 20110407

REACTIONS (10)
  - Bronchitis [Unknown]
  - Pneumonia [Unknown]
  - Lung infection [Recovering/Resolving]
  - Brain injury [Recovering/Resolving]
  - Myalgia [Recovered/Resolved]
  - Chest pain [Recovering/Resolving]
  - Abdominal pain [Recovered/Resolved]
  - Abdominal pain lower [Recovered/Resolved]
  - Otitis media acute [Recovered/Resolved]
  - Infection [Recovering/Resolving]

NARRATIVE: CASE EVENT DATE: 20101001
